FAERS Safety Report 6896294-3 (Version None)
Quarter: 2010Q3

REPORT INFORMATION
  Report Type: 
  Country: None (occurrence: None)
  Receive Date: 20100802
  Receipt Date: 20100727
  Transmission Date: 20110219
  Serious: Yes (Death)
  Sender: FDA-Public Use
  Company Number: B0667751A

PATIENT
  Sex: Male
  Weight: 55 kg

DRUGS (18)
  1. ALKERAN [Suspect]
     Indication: CORD BLOOD TRANSPLANT THERAPY
     Dosage: 40MG PER DAY
     Route: 042
     Dates: start: 20040907, end: 20040908
  2. FLUDARA [Suspect]
     Indication: CORD BLOOD TRANSPLANT THERAPY
     Dosage: 25MG PER DAY
     Route: 042
     Dates: start: 20040902, end: 20040906
  3. IRRADIATION [Suspect]
  4. GRAN [Concomitant]
     Dates: start: 20040911, end: 20040926
  5. CYCLOSPORINE [Concomitant]
     Indication: IMMUNOSUPPRESSION
     Dosage: 165MG PER DAY
     Dates: start: 20040909, end: 20040926
  6. ACINON [Concomitant]
     Dosage: 150MG PER DAY
     Route: 048
     Dates: start: 20040621, end: 20040919
  7. CALSLOT [Concomitant]
     Dosage: 20MG PER DAY
     Route: 048
     Dates: start: 20040621, end: 20040919
  8. DIFLUCAN [Concomitant]
     Dosage: 200MG PER DAY
     Route: 048
     Dates: start: 20040827, end: 20040919
  9. PRODIF [Concomitant]
     Dosage: 400MG PER DAY
     Route: 042
     Dates: start: 20040920, end: 20040926
  10. CIPROFLOXACIN HCL [Concomitant]
     Dosage: 600MG PER DAY
     Route: 042
     Dates: start: 20040902, end: 20040919
  11. COTRIM [Concomitant]
     Dosage: 4IUAX PER DAY
     Route: 048
     Dates: start: 20040831, end: 20040908
  12. UNKNOWN DRUG [Concomitant]
     Dosage: 1.25MG PER DAY
     Route: 042
     Dates: start: 20040905, end: 20040919
  13. MAXIPIME [Concomitant]
     Dosage: 4G PER DAY
     Route: 042
     Dates: start: 20040920, end: 20040926
  14. FULCALIQ [Concomitant]
     Dosage: 903ML PER DAY
     Route: 042
     Dates: start: 20040920, end: 20040926
  15. SOLU-MEDROL [Concomitant]
     Dosage: 500MG PER DAY
     Route: 042
     Dates: start: 20040921, end: 20040923
  16. SOLU-MEDROL [Concomitant]
     Dosage: 250MG PER DAY
     Route: 042
     Dates: start: 20040924, end: 20040925
  17. SOLU-MEDROL [Concomitant]
     Dosage: 125MG PER DAY
     Route: 042
     Dates: start: 20040926, end: 20040926
  18. VANCOMYCIN [Concomitant]
     Dosage: 1G PER DAY
     Route: 042
     Dates: start: 20040921, end: 20040926

REACTIONS (1)
  - PNEUMONIA [None]
